FAERS Safety Report 19364480 (Version 1)
Quarter: 2021Q2

REPORT INFORMATION
  Report Type: Spontaneous
  Country: US (occurrence: US)
  Receive Date: 20210602
  Receipt Date: 20210602
  Transmission Date: 20210717
  Serious: Yes (Hospitalization)
  Sender: FDA-Public Use
  Company Number: None

PATIENT
  Sex: Female

DRUGS (11)
  1. METFORMIN [Concomitant]
     Active Substance: METFORMIN HYDROCHLORIDE
  2. METHOTREXATE. [Concomitant]
     Active Substance: METHOTREXATE
  3. ENBREL [Suspect]
     Active Substance: ETANERCEPT
     Indication: TYPE 1 DIABETES MELLITUS
     Dosage: OTHER FREQUENCY:WEEKLY;?
     Route: 058
     Dates: start: 20200506
  4. GLIPIZIDE. [Concomitant]
     Active Substance: GLIPIZIDE
  5. LANTUS [Concomitant]
     Active Substance: INSULIN GLARGINE
  6. PROTONIOX [Concomitant]
  7. HUMALOG [Concomitant]
     Active Substance: INSULIN LISPRO
  8. MULTIPLE VITAMIN [Concomitant]
     Active Substance: VITAMINS
  9. T SLIM 3ML [Concomitant]
  10. PENNSAID [Concomitant]
     Active Substance: DICLOFENAC SODIUM
  11. DIOVAN [Concomitant]
     Active Substance: VALSARTAN

REACTIONS (3)
  - Therapy interrupted [None]
  - Surgery [None]
  - Nephrolithiasis [None]
